FAERS Safety Report 10098509 (Version 2)
Quarter: 2014Q2

REPORT INFORMATION
  Report Type: Report from Study
  Country: JP (occurrence: JP)
  Receive Date: 20140423
  Receipt Date: 20140516
  Transmission Date: 20141212
  Serious: Yes (Other)
  Sender: FDA-Public Use
  Company Number: PHHY2014JP048222

PATIENT
  Age: 11 Year
  Sex: Male

DRUGS (1)
  1. EVEROLIMUS [Suspect]
     Indication: ANGIOMYOLIPOMA
     Route: 048

REACTIONS (1)
  - Epilepsy [Unknown]
